FAERS Safety Report 5632079-3 (Version None)
Quarter: 2008Q1

REPORT INFORMATION
  Report Type: 
  Country: None (occurrence: None)
  Receive Date: 20080220
  Receipt Date: 20080215
  Transmission Date: 20080703
  Serious: Yes (Life-Threatening, Hospitalization)
  Sender: FDA-Public Use
  Company Number: B0492932A

PATIENT
  Age: 9 Year
  Sex: Male

DRUGS (5)
  1. COMBIVIR [Suspect]
     Indication: HIV INFECTION
     Route: 048
     Dates: start: 20070605, end: 20071025
  2. ABACAVIR [Suspect]
     Indication: HIV INFECTION
     Route: 048
     Dates: start: 20070605
  3. NEVIRAPINE [Suspect]
     Indication: HIV INFECTION
     Dates: start: 20070605
  4. CO-TRIMOXAZOLE [Concomitant]
     Dates: start: 20070522
  5. MULTI-VITAMIN [Concomitant]

REACTIONS (16)
  - APLASTIC ANAEMIA [None]
  - ASTHENIA [None]
  - BRONCHOPNEUMONIA [None]
  - CARDIAC FAILURE CONGESTIVE [None]
  - DRUG TOXICITY [None]
  - GALLOP RHYTHM PRESENT [None]
  - HEPATOMEGALY [None]
  - MALAISE [None]
  - PALLOR [None]
  - PITTING OEDEMA [None]
  - PRODUCTIVE COUGH [None]
  - PYREXIA [None]
  - SPLENOMEGALY [None]
  - TACHYCARDIA [None]
  - TACHYPNOEA [None]
  - THROMBOCYTOPENIA [None]
